FAERS Safety Report 4540200-3 (Version None)
Quarter: 2004Q4

REPORT INFORMATION
  Report Type: 
  Country: None (occurrence: None)
  Receive Date: 20041222
  Receipt Date: 20041202
  Transmission Date: 20050328
  Serious: Yes (Hospitalization)
  Sender: FDA-Public Use
  Company Number: JP_041005000

PATIENT
  Age: 84 Year
  Sex: Female
  Weight: 49 kg

DRUGS (4)
  1. EVISTA [Suspect]
     Indication: OSTEOPOROSIS POSTMENOPAUSAL
     Dosage: 60 MG/1 DAY
     Dates: start: 20041011, end: 20041024
  2. WARFARIN POTASSIUM [Concomitant]
  3. MAGNESIUM OXIDE [Concomitant]
  4. LACTOMIN [Concomitant]

REACTIONS (5)
  - CONDITION AGGRAVATED [None]
  - FEELING ABNORMAL [None]
  - HEART RATE DECREASED [None]
  - PROTHROMBIN TIME PROLONGED [None]
  - THROMBOPHLEBITIS [None]
